FAERS Safety Report 12873350 (Version 1)
Quarter: 2016Q4

REPORT INFORMATION
  Report Type: Spontaneous
  Country: US (occurrence: US)
  Receive Date: 20161021
  Receipt Date: 20161021
  Transmission Date: 20170207
  Serious: No
  Sender: FDA-Public Use
  Company Number: US-ALLERGAN-1518416US

PATIENT
  Sex: Male
  Weight: 99.77 kg

DRUGS (2)
  1. FML [Suspect]
     Active Substance: FLUOROMETHOLONE
     Indication: EYELID INFECTION
  2. FML [Suspect]
     Active Substance: FLUOROMETHOLONE
     Indication: EYELID IRRITATION
     Dosage: UNK, PRN
     Route: 047
     Dates: start: 20150128, end: 201508

REACTIONS (2)
  - Eye irritation [Not Recovered/Not Resolved]
  - Eye discharge [Not Recovered/Not Resolved]

NARRATIVE: CASE EVENT DATE: 2015
